FAERS Safety Report 9639208 (Version 2)
Quarter: 2013Q4

REPORT INFORMATION
  Report Type: Spontaneous
  Country: DE (occurrence: DE)
  Receive Date: 20131022
  Receipt Date: 20131206
  Transmission Date: 20140711
  Serious: Yes (Hospitalization, Disabling)
  Sender: FDA-Public Use
  Company Number: DE-ROCHE-1289933

PATIENT
  Age: 44 Year
  Sex: Female

DRUGS (5)
  1. XELODA [Suspect]
     Indication: PANCREATIC CARCINOMA
     Dosage: DAY 1-14: RETAKE ON DAY 22
     Route: 048
     Dates: start: 20110804
  2. DUROGESIC [Concomitant]
     Indication: PAIN
     Dosage: 150 MCG/HOUR
     Route: 065
     Dates: start: 2010
  3. PANTOZOL (GERMANY) [Concomitant]
     Indication: PROPHYLAXIS
     Route: 065
     Dates: start: 2010
  4. PASPERTIN (GERMANY) [Concomitant]
     Indication: NAUSEA
     Route: 065
     Dates: start: 2010
  5. NOVALGIN [Concomitant]
     Indication: PAIN
     Route: 065
     Dates: start: 2010

REACTIONS (2)
  - Tooth injury [Recovered/Resolved with Sequelae]
  - Off label use [Unknown]
